FAERS Safety Report 7112256-5 (Version None)
Quarter: 2010Q4

REPORT INFORMATION
  Report Type: 
  Country: None (occurrence: None)
  Receive Date: 20101119
  Receipt Date: 20100527
  Transmission Date: 20110411
  Serious: No
  Sender: FDA-Public Use
  Company Number: A0857494A

PATIENT
  Age: 51 Year
  Sex: Male
  Weight: 105 kg

DRUGS (5)
  1. AVODART [Suspect]
     Indication: BENIGN PROSTATIC HYPERPLASIA
     Dosage: 1CAP PER DAY
     Route: 048
     Dates: start: 20070101
  2. TEMODAR [Suspect]
     Indication: BRAIN NEOPLASM
     Route: 065
  3. KEPPRA [Concomitant]
  4. ZOCOR [Concomitant]
  5. COUMADIN [Concomitant]

REACTIONS (2)
  - DRUG INTERACTION [None]
  - NIPPLE PAIN [None]
